FAERS Safety Report 11554061 (Version 1)
Quarter: 2015Q3

REPORT INFORMATION
  Report Type: Spontaneous
  Country: US (occurrence: US)
  Receive Date: 20150925
  Receipt Date: 20150925
  Transmission Date: 20151125
  Serious: No
  Sender: FDA-Public Use
  Company Number: US-PFIZER INC-2015310632

PATIENT
  Age: 16 Year
  Sex: Male
  Weight: 63 kg

DRUGS (3)
  1. NEURONTIN [Suspect]
     Active Substance: GABAPENTIN
     Dosage: 2 DF, 1X/DAY (TWO PILLS IN THE MORNING)
  2. NEURONTIN [Suspect]
     Active Substance: GABAPENTIN
     Dosage: 3 DF, 1X/DAY
  3. NEURONTIN [Suspect]
     Active Substance: GABAPENTIN
     Dosage: 4 DF, 1X/DAY (FOUR PILLS BY THE EVENING)

REACTIONS (1)
  - Drug ineffective [Unknown]
